FAERS Safety Report 23723179 (Version 2)
Quarter: 2024Q2

REPORT INFORMATION
  Report Type: Spontaneous
  Country: US (occurrence: US)
  Receive Date: 20240409
  Receipt Date: 20240412
  Transmission Date: 20240716
  Serious: Yes (Hospitalization)
  Sender: FDA-Public Use
  Company Number: US-ELI_LILLY_AND_COMPANY-US202404001648

PATIENT
  Age: 61 Year
  Sex: Female

DRUGS (1)
  1. FORTEO [Suspect]
     Active Substance: TERIPARATIDE
     Indication: Product used for unknown indication
     Dosage: UNK, UNKNOWN
     Route: 065
     Dates: start: 202207

REACTIONS (6)
  - Influenza [Recovering/Resolving]
  - Bronchitis [Recovering/Resolving]
  - Illness [Unknown]
  - General physical condition abnormal [Unknown]
  - Memory impairment [Unknown]
  - Product dose omission issue [Unknown]
